FAERS Safety Report 10444454 (Version 6)
Quarter: 2014Q4

REPORT INFORMATION
  Report Type: Spontaneous
  Country: TW (occurrence: None)
  Receive Date: 20140908
  Receipt Date: 20141112
  Transmission Date: 20150528
  Serious: Yes (Other)
  Sender: FDA-Public Use
  Company Number: 2014MPI01066

PATIENT
  Age: 59 Year
  Sex: Female
  Weight: 52 kg

DRUGS (10)
  1. DEXAMETHASONE (DEXAMETHASONE SODIUM PHOSPHATE) [Concomitant]
  2. VINBLASTINE SULFATE. [Suspect]
     Active Substance: VINBLASTINE SULFATE
     Indication: HODGKIN^S DISEASE
     Dosage: 8 MG, Q28D, INTRAVENOUS
     Route: 042
     Dates: start: 20140325, end: 20140812
  3. SULFAMETHOXAZOLE AND TRIMETHOPRIM (SULFAMETHOXAZOLE, TRIMETHOPRIM) [Concomitant]
  4. DOXORUBICIN [Suspect]
     Active Substance: DOXORUBICIN
     Indication: HODGKIN^S DISEASE
     Dosage: 35 MG, Q28D, INTRAVENOUS
     Route: 042
     Dates: start: 20140325, end: 20140812
  5. DACARBAZINE. [Suspect]
     Active Substance: DACARBAZINE
     Indication: HODGKIN^S DISEASE
     Dosage: 529 MG, Q28D, INTRAVENOUS
     Route: 042
     Dates: start: 20140325, end: 20140812
  6. GABAPENTIN. [Concomitant]
     Active Substance: GABAPENTIN
  7. BRENTUXIMAB VEDOTIN [Suspect]
     Active Substance: BRENTUXIMAB VEDOTIN
     Indication: HODGKIN^S DISEASE
     Dosage: 56 MG, Q28D, INTRAVENOUS
     Route: 042
     Dates: start: 20140325, end: 20140812
  8. GINKGO (GINKGO BILOBA) [Concomitant]
  9. METFORMIN [Concomitant]
     Active Substance: METFORMIN HYDROCHLORIDE
  10. PALONOSETRON [Concomitant]
     Active Substance: PALONOSETRON

REACTIONS (6)
  - Chest discomfort [None]
  - Herpes virus infection [None]
  - Pneumonia [None]
  - Hepatitis B [None]
  - Pyrexia [None]
  - Electrocardiogram QT prolonged [None]

NARRATIVE: CASE EVENT DATE: 20140521
